FAERS Safety Report 22653336 (Version 1)
Quarter: 2023Q2

REPORT INFORMATION
  Report Type: Spontaneous
  Country: US (occurrence: None)
  Receive Date: 20230629
  Receipt Date: 20230629
  Transmission Date: 20230722
  Serious: Yes (Hospitalization, Other)
  Sender: FDA-Public Use
  Company Number: US-MLMSERVICE-20230619-4355939-1

PATIENT
  Age: 71 Year
  Sex: Female

DRUGS (2)
  1. METHOTREXATE [Suspect]
     Active Substance: METHOTREXATE
     Indication: Rheumatoid arthritis
     Dosage: LONG-STANDING METHOTREXATE USE
  2. OSELTAMIVIR [Concomitant]
     Active Substance: OSELTAMIVIR

REACTIONS (9)
  - Hypoglycaemia [Unknown]
  - Epstein-Barr virus infection reactivation [Unknown]
  - Acute kidney injury [Recovered/Resolved]
  - Encephalopathy [Unknown]
  - Obstructive pancreatitis [Unknown]
  - Hypotension [Unknown]
  - Renal tubular necrosis [Recovered/Resolved]
  - Epstein-Barr virus associated lymphoproliferative disorder [Unknown]
  - Immunodeficiency [Unknown]
